FAERS Safety Report 9748100 (Version 1)
Quarter: 2013Q4

REPORT INFORMATION
  Report Type: Spontaneous
  Country: US (occurrence: None)
  Receive Date: 20131209
  Receipt Date: 20131209
  Transmission Date: 20140711
  Serious: Yes (Hospitalization)
  Sender: FDA-Public Use
  Company Number: None

PATIENT
  Age: 74 Year
  Sex: Female
  Weight: 115 kg

DRUGS (8)
  1. PIOGLITAZONE [Suspect]
     Indication: TYPE 2 DIABETES MELLITUS
     Route: 048
     Dates: start: 20081017
  2. AMLODIPINE [Concomitant]
  3. VENLAFAXINE [Concomitant]
  4. VALSARTAN [Concomitant]
  5. CRESTOR [Concomitant]
  6. LANTUS SOLOSTAR [Concomitant]
  7. METOPROLOL TARTRATE [Concomitant]
  8. MYSTATIN /TRIAMCINOLONE [Concomitant]

REACTIONS (11)
  - Dyspnoea [None]
  - Chest pain [None]
  - Gait disturbance [None]
  - Dyspnoea [None]
  - Balance disorder [None]
  - Hypertension [None]
  - Cardiac disorder [None]
  - Renal disorder [None]
  - Cognitive disorder [None]
  - Asthenia [None]
  - Malaise [None]
